FAERS Safety Report 12094899 (Version 1)
Quarter: 2016Q1

REPORT INFORMATION
  Report Type: Spontaneous
  Country: IT (occurrence: IT)
  Receive Date: 20160219
  Receipt Date: 20160219
  Transmission Date: 20160526
  Serious: No
  Sender: FDA-Public Use
  Company Number: IT-PERNIX THERAPEUTICS-2015PT000149

PATIENT

DRUGS (1)
  1. ISOCEF [Suspect]
     Active Substance: CEFTIBUTEN
     Indication: OROPHARYNGEAL PAIN
     Dosage: 400 MG, QD
     Route: 048
     Dates: end: 201505

REACTIONS (4)
  - Eye irritation [Recovering/Resolving]
  - Lip oedema [Recovering/Resolving]
  - Pruritus generalised [Recovering/Resolving]
  - Eye swelling [Recovering/Resolving]

NARRATIVE: CASE EVENT DATE: 20150501
